FAERS Safety Report 9912106 (Version 2)
Quarter: 2014Q1

REPORT INFORMATION
  Report Type: Report from Study
  Country: CA (occurrence: CA)
  Receive Date: 20140219
  Receipt Date: 20140219
  Transmission Date: 20141002
  Serious: Yes (Hospitalization)
  Sender: FDA-Public Use
  Company Number: CA-BRISTOL-MYERS SQUIBB COMPANY-18942987

PATIENT
  Age: 60 Year
  Sex: Female

DRUGS (13)
  1. ORENCIA [Suspect]
     Indication: RHEUMATOID ARTHRITIS
     Dosage: RECENT DOSE:01-MAR-13?3C81662,3C83972 EXP:SEP15?3J75953,EXP:JUL2016
     Route: 042
     Dates: start: 20120530
  2. ACETAMINOPHEN [Suspect]
  3. CYMBALTA [Concomitant]
  4. DILTIAZEM CD [Concomitant]
  5. VITAMIN D [Concomitant]
  6. FOLIC ACID [Concomitant]
  7. METHOTREXATE [Concomitant]
  8. CLONAZEPAM [Concomitant]
  9. PREDNISONE [Concomitant]
  10. PLAQUENIL [Concomitant]
  11. DOMPERIDONE [Concomitant]
  12. NICODERM [Concomitant]
     Dosage: PATCH
  13. DEXLANSOPRAZOLE [Concomitant]
     Dosage: DEXILANT

REACTIONS (11)
  - Vomiting [Unknown]
  - Diarrhoea [Unknown]
  - Full blood count decreased [Unknown]
  - Urinary tract infection [Recovering/Resolving]
  - Rash [Not Recovered/Not Resolved]
  - Paraesthesia [Unknown]
  - Depression [Unknown]
  - Pharyngitis [Unknown]
  - Pyrexia [Recovered/Resolved]
  - Pelvic pain [Unknown]
  - Back pain [Unknown]
